FAERS Safety Report 18564591 (Version 1)
Quarter: 2020Q4

REPORT INFORMATION
  Report Type: Spontaneous
  Country: US (occurrence: US)
  Receive Date: 20201130
  Receipt Date: 20201130
  Transmission Date: 20210114
  Serious: Yes (Hospitalization)
  Sender: FDA-Public Use
  Company Number: None

PATIENT
  Sex: Female

DRUGS (6)
  1. FOLIC ACID. [Concomitant]
     Active Substance: FOLIC ACID
  2. ENBREL [Suspect]
     Active Substance: ETANERCEPT
     Indication: RHEUMATOID ARTHRITIS
     Route: 058
     Dates: start: 20180316
  3. ZOLPIDEM [Concomitant]
     Active Substance: ZOLPIDEM TARTRATE
  4. MELOXICAM. [Concomitant]
     Active Substance: MELOXICAM
  5. METHOTREXATE. [Concomitant]
     Active Substance: METHOTREXATE
  6. OMEPRAZOLE. [Concomitant]
     Active Substance: OMEPRAZOLE

REACTIONS (7)
  - Infection [None]
  - Arthralgia [None]
  - Neck pain [None]
  - Nephrolithiasis [None]
  - Sepsis [None]
  - Therapy interrupted [None]
  - Condition aggravated [None]
